FAERS Safety Report 6341634-7 (Version None)
Quarter: 2009Q3

REPORT INFORMATION
  Report Type: 
  Country: None (occurrence: None)
  Receive Date: 20090904
  Receipt Date: 20090825
  Transmission Date: 20100115
  Serious: Yes (Hospitalization)
  Sender: FDA-Public Use
  Company Number: US-ABBOTT-09P-163-0593548-00

PATIENT
  Sex: Male

DRUGS (2)
  1. DEPAKOTE ER [Suspect]
     Indication: CONVULSION
     Dates: start: 20090501, end: 20090814
  2. DEPAKOTE ER [Suspect]
     Dates: start: 20090815

REACTIONS (11)
  - ANGER [None]
  - DYSKINESIA [None]
  - EYE ROLLING [None]
  - HALLUCINATION [None]
  - HOSPITALISATION [None]
  - MALAISE [None]
  - MOOD SWINGS [None]
  - MUSCLE TWITCHING [None]
  - PERIPHERAL COLDNESS [None]
  - SOMNOLENCE [None]
  - TREMOR [None]
